FAERS Safety Report 4707576-5 (Version None)
Quarter: 2005Q3

REPORT INFORMATION
  Report Type: 
  Country: None (occurrence: None)
  Receive Date: 20050706
  Receipt Date: 20050620
  Transmission Date: 20060218
  Serious: Yes (Hospitalization)
  Sender: FDA-Public Use
  Company Number: GB-BRISTOL-MYERS SQUIBB COMPANY-13015920

PATIENT
  Age: 73 Year
  Sex: Male

DRUGS (4)
  1. CETUXIMAB [Suspect]
     Indication: COLORECTAL CANCER
     Dosage: MOST RECENT INFUSION 16-MAY-2005,DOSE REDUCED, DELAYED
     Route: 041
     Dates: start: 20050321
  2. OXALIPLATIN [Suspect]
     Indication: COLORECTAL CANCER
     Dosage: MOST RECENT INFUSION16-MAY-2005,DOSE REDUCED,DOSE DELAYED
     Route: 042
     Dates: start: 20050321
  3. FLUOROURACIL [Suspect]
     Indication: COLORECTAL CANCER
     Dosage: MOST RECENT INFUSION 16-MAY-2005.
     Route: 042
     Dates: start: 20050321
  4. PYRIDOXINE HCL [Concomitant]

REACTIONS (2)
  - DIARRHOEA [None]
  - HAEMATEMESIS [None]
